FAERS Safety Report 4737410-9 (Version None)
Quarter: 2005Q3

REPORT INFORMATION
  Report Type: 
  Country: None (occurrence: None)
  Receive Date: 20050805
  Receipt Date: 20050803
  Transmission Date: 20060218
  Serious: Yes (Death, Hospitalization)
  Sender: FDA-Public Use
  Company Number: USA-2005-0020830

PATIENT
  Age: 46 Year
  Sex: Female

DRUGS (5)
  1. OXYCONTIN [Suspect]
     Indication: NECK PAIN
  2. DIAZEPAM [Concomitant]
     Indication: NECK PAIN
  3. PERCOCET [Concomitant]
  4. SOMA [Concomitant]
  5. XANAX [Concomitant]

REACTIONS (3)
  - FALL [None]
  - LOSS OF CONSCIOUSNESS [None]
  - MULTIPLE DRUG OVERDOSE [None]
